FAERS Safety Report 7238083-6 (Version None)
Quarter: 2011Q1

REPORT INFORMATION
  Report Type: 
  Country: None (occurrence: None)
  Receive Date: 20110121
  Receipt Date: 20110114
  Transmission Date: 20110831
  Serious: Yes (Hospitalization, Other)
  Sender: FDA-Public Use
  Company Number: B0694367A

PATIENT
  Age: 56 Year
  Sex: Female

DRUGS (5)
  1. CELEBREX [Concomitant]
  2. AMOXYCILLIN/CLAVULANIC ACID [Suspect]
     Dosage: 1G TWICE PER DAY
     Route: 048
     Dates: start: 20101212, end: 20101214
  3. MAGNESIUM [Concomitant]
  4. VOLTAREN [Concomitant]
  5. SORTIS [Concomitant]

REACTIONS (4)
  - RASH [None]
  - SWELLING [None]
  - TYPE I HYPERSENSITIVITY [None]
  - PRURITUS [None]
